FAERS Safety Report 7957888-7 (Version None)
Quarter: 2011Q4

REPORT INFORMATION
  Report Type: 
  Country: None (occurrence: None)
  Receive Date: 20111205
  Receipt Date: 20111123
  Transmission Date: 20120403
  Serious: Yes (Hospitalization, Other)
  Sender: FDA-Public Use
  Company Number: US-ELI_LILLY_AND_COMPANY-US201107001046

PATIENT
  Sex: Female

DRUGS (18)
  1. CARDIZEM CD [Concomitant]
     Dosage: 240 MG, UNK
  2. ZOCOR [Concomitant]
  3. CITRACAL-D [Concomitant]
  4. GLUCOSAMINE [Concomitant]
     Dosage: 1500 MG, UNK
  5. CEPHALEXIN [Concomitant]
     Dosage: 500 MG, BID
  6. TYLENOL-500 [Concomitant]
  7. NEXIUM [Concomitant]
     Dosage: 40 MG, UNK
  8. FORTEO [Suspect]
     Dosage: 20 UG, QD
     Route: 065
  9. MULTIVITAMIN [Concomitant]
  10. ASPIRIN [Concomitant]
     Dosage: 325 MG, UNK
  11. FORTEO [Suspect]
     Dosage: 20 UG, QD
     Route: 065
  12. SIMVASTATIN [Concomitant]
     Dosage: 10 MG, UNK
  13. PRESERVISION LUTEIN EYE VITA.+MIN.SUP.SOFTG. [Concomitant]
  14. CHONDROITIN [Concomitant]
     Dosage: 1200 MG, UNK
  15. LOSARTAN POTASSIUM [Concomitant]
     Dosage: 25 MG, UNK
  16. FORTEO [Suspect]
     Indication: OSTEOPOROSIS
     Dosage: 20 UG, QD
     Route: 065
     Dates: start: 20110316
  17. FORTEO [Suspect]
     Dosage: 20 UG, QD
     Route: 065
  18. FISH [Concomitant]
     Dosage: 1200 MG, UNK

REACTIONS (13)
  - BACK DISORDER [None]
  - BONE PAIN [None]
  - PARALYSIS [None]
  - HYPOAESTHESIA [None]
  - HEMIPARESIS [None]
  - PAIN [None]
  - ARTHRITIS [None]
  - GAIT DISTURBANCE [None]
  - VISUAL IMPAIRMENT [None]
  - INJECTION SITE HAEMATOMA [None]
  - NERVOUS SYSTEM DISORDER [None]
  - MUSCLE DISORDER [None]
  - NERVE INJURY [None]
